FAERS Safety Report 12325296 (Version 4)
Quarter: 2016Q2

REPORT INFORMATION
  Report Type: Report from Study
  Country: US (occurrence: US)
  Receive Date: 20160502
  Receipt Date: 20160601
  Transmission Date: 20160815
  Serious: Yes (Hospitalization, Other)
  Sender: FDA-Public Use
  Company Number: US-ACTELION-A-NJ2016-135158

PATIENT
  Age: 62 Year
  Sex: Female

DRUGS (17)
  1. VITAMIN B12 [Concomitant]
     Active Substance: CYANOCOBALAMIN
  2. HYDROCODONE [Concomitant]
     Active Substance: HYDROCODONE
  3. PROMETHAZINE [Concomitant]
     Active Substance: PROMETHAZINE\PROMETHAZINE HYDROCHLORIDE
  4. METOLAZONE. [Concomitant]
     Active Substance: METOLAZONE
  5. SELEXIPAG [Suspect]
     Active Substance: SELEXIPAG
     Dosage: 400 MCG, BID
     Route: 048
     Dates: start: 20160425
  6. ASPIRIN. [Concomitant]
     Active Substance: ASPIRIN
  7. ALLOPURINOL. [Concomitant]
     Active Substance: ALLOPURINOL
  8. CIPRO [Concomitant]
     Active Substance: CIPROFLOXACIN HYDROCHLORIDE
  9. SIMVASTATIN. [Concomitant]
     Active Substance: SIMVASTATIN
  10. LEVOTHYROXINE. [Concomitant]
     Active Substance: LEVOTHYROXINE
  11. TORSEMIDE. [Concomitant]
     Active Substance: TORSEMIDE
  12. ACETAMINOPHEN\HYDROCODONE BITARTRATE [Concomitant]
     Active Substance: ACETAMINOPHEN\HYDROCODONE BITARTRATE
  13. SELEXIPAG [Suspect]
     Active Substance: SELEXIPAG
     Dosage: 200 MCG, BID
     Route: 048
     Dates: start: 20160504, end: 20160520
  14. OMEPRAZOLE. [Concomitant]
     Active Substance: OMEPRAZOLE
  15. SELEXIPAG [Suspect]
     Active Substance: SELEXIPAG
     Dosage: 600 MCG, BID
     Route: 048
     Dates: start: 20160421
  16. SELEXIPAG [Suspect]
     Active Substance: SELEXIPAG
     Indication: PULMONARY ARTERIAL HYPERTENSION
     Dosage: 400 MCG, BID
     Route: 048
     Dates: start: 20160406, end: 20160520
  17. FLUOXETINE [Concomitant]
     Active Substance: FLUOXETINE HYDROCHLORIDE

REACTIONS (11)
  - Cardiac failure [Unknown]
  - Hypotension [Unknown]
  - Sleep disorder [Unknown]
  - Dialysis [Unknown]
  - Pain in jaw [Unknown]
  - Arteriovenous fistula operation [Unknown]
  - Gait disturbance [Unknown]
  - Diarrhoea [Unknown]
  - Procedural hypotension [Unknown]
  - Drug intolerance [Unknown]
  - Hallucinations, mixed [Unknown]

NARRATIVE: CASE EVENT DATE: 20160429
